FAERS Safety Report 4651916-2 (Version None)
Quarter: 2005Q2

REPORT INFORMATION
  Report Type: 
  Country: None (occurrence: None)
  Receive Date: 20050502
  Receipt Date: 20050419
  Transmission Date: 20051028
  Serious: Yes (Hospitalization)
  Sender: FDA-Public Use
  Company Number: HQWYE176621APR05

PATIENT
  Age: 51 Year
  Sex: Female
  Weight: 102.15 kg

DRUGS (7)
  1. PREMARIN [Suspect]
     Dosage: CYCLICALLY
     Dates: start: 19980101, end: 20020101
  2. PREMARIN [Suspect]
     Indication: VULVOVAGINAL DRYNESS
     Dosage: 1 GRAM DAILY, VAGINAL
     Route: 067
     Dates: start: 20020701, end: 20020820
  3. PREMPRO [Suspect]
     Dosage: 0.625 ,G/2.5MG DAILY, ORAL
     Route: 048
     Dates: start: 20020101, end: 20020301
  4. PROTONIX [Suspect]
     Indication: DUODENAL ULCER
     Dosage: 40 MG DAILY
     Dates: start: 20020101
  5. PROTONIX [Suspect]
     Indication: PEPTIC ULCER
     Dosage: 40 MG DAILY
     Dates: start: 20020101
  6. POTASSIUM ACETATE [Concomitant]
  7. METOCLOPRAMIDE [Concomitant]

REACTIONS (8)
  - ANOREXIA [None]
  - HAEMATOCHEZIA [None]
  - LOSS OF CONSCIOUSNESS [None]
  - NIPPLE EXUDATE BLOODY [None]
  - SYNCOPE [None]
  - UTERINE CANCER [None]
  - VAGINAL HAEMORRHAGE [None]
  - WEIGHT DECREASED [None]
